FAERS Safety Report 4450921-9 (Version None)
Quarter: 2004Q3

REPORT INFORMATION
  Report Type: 
  Country: None (occurrence: None)
  Receive Date: 20040916
  Receipt Date: 20030409
  Transmission Date: 20050211
  Serious: Yes (Other)
  Sender: FDA-Public Use
  Company Number: US-BRISTOL-MYERS SQUIBB COMPANY-12242277

PATIENT
  Age: 15 Year
  Sex: Female

DRUGS (1)
  1. STADOL [Suspect]
     Indication: HEADACHE
     Route: 030
     Dates: start: 19830813, end: 19950219

REACTIONS (5)
  - ASTHENIA [None]
  - DEPENDENCE [None]
  - DIZZINESS [None]
  - DYSPNOEA [None]
  - PANIC ATTACK [None]
